FAERS Safety Report 13627036 (Version 1)
Quarter: 2017Q2

REPORT INFORMATION
  Report Type: Spontaneous
  Country: US (occurrence: US)
  Receive Date: 20170607
  Receipt Date: 20170607
  Transmission Date: 20170830
  Serious: Yes (Death)
  Sender: FDA-Public Use
  Company Number: None

PATIENT
  Sex: Male

DRUGS (1)
  1. RECLAST GENERIC [Suspect]
     Active Substance: ZOLEDRONIC ACID
     Dosage: 5 MG YEARLY INTRAVENOUS
     Route: 042

REACTIONS (1)
  - Death [None]
